FAERS Safety Report 13301752 (Version 2)
Quarter: 2017Q1

REPORT INFORMATION
  Report Type: Spontaneous
  Country: FR (occurrence: FR)
  Receive Date: 20170307
  Receipt Date: 20170324
  Transmission Date: 20170428
  Serious: Yes (Other)
  Sender: FDA-Public Use
  Company Number: PHHY2017FR032259

PATIENT
  Age: 58 Year
  Sex: Male

DRUGS (7)
  1. ALLOPURINOL MERCK [Suspect]
     Active Substance: ALLOPURINOL
     Indication: PRODUCT USED FOR UNKNOWN INDICATION
     Dosage: 100 MG, QD
     Route: 048
     Dates: start: 201611, end: 20170209
  2. PROCORALAN (IVABRADINE) [Suspect]
     Active Substance: IVABRADINE
     Indication: CONGESTIVE CARDIOMYOPATHY
     Dosage: 5 MG, BID
     Route: 048
     Dates: start: 20170109, end: 20170209
  3. ENTRESTO [Suspect]
     Active Substance: SACUBITRIL\VALSARTAN
     Dosage: 0.5 DF (97/103 MG), BID
     Route: 048
     Dates: start: 20161110, end: 20170210
  4. FUROSEMIDE. [Concomitant]
     Active Substance: FUROSEMIDE
     Indication: PRODUCT USED FOR UNKNOWN INDICATION
     Dosage: UNK
     Route: 065
     Dates: start: 2015
  5. INSPRA [Suspect]
     Active Substance: EPLERENONE
     Indication: CONGESTIVE CARDIOMYOPATHY
     Dosage: 50 MG, QD
     Route: 048
     Dates: start: 201601, end: 20170209
  6. CARDENSIEL [Concomitant]
     Active Substance: BISOPROLOL FUMARATE
     Indication: PRODUCT USED FOR UNKNOWN INDICATION
     Dosage: 5 MG, UNK
     Route: 065
     Dates: start: 2011
  7. ENTRESTO [Suspect]
     Active Substance: SACUBITRIL\VALSARTAN
     Indication: CONGESTIVE CARDIOMYOPATHY
     Dosage: 1 DF, BID
     Route: 048
     Dates: start: 20151119, end: 201611

REACTIONS (1)
  - Purpura [Recovered/Resolved]

NARRATIVE: CASE EVENT DATE: 201701
